FAERS Safety Report 24328951 (Version 1)
Quarter: 2024Q3

REPORT INFORMATION
  Report Type: Spontaneous
  Country: US (occurrence: None)
  Receive Date: 20240917
  Receipt Date: 20240917
  Transmission Date: 20241017
  Serious: Yes (Death)
  Sender: Public
  Company Number: None

PATIENT
  Age: 69 Year
  Sex: Male
  Weight: 109.6 kg

DRUGS (2)
  1. YESCARTA [Suspect]
     Active Substance: AXICABTAGENE CILOLEUCEL
     Indication: Lymphoma
     Dosage: 68 ML ONE TIME INTRAVENOUS
     Route: 042
     Dates: start: 20240617, end: 20240617
  2. DEVICE [Suspect]
     Active Substance: DEVICE

REACTIONS (7)
  - Sepsis [None]
  - Acute kidney injury [None]
  - Cytokine release syndrome [None]
  - Renal failure [None]
  - Dialysis [None]
  - Immune effector cell-associated neurotoxicity syndrome [None]
  - Device related thrombosis [None]

NARRATIVE: CASE EVENT DATE: 20240704
